FAERS Safety Report 21574531 (Version 1)
Quarter: 2022Q4

REPORT INFORMATION
  Report Type: Spontaneous
  Country: US (occurrence: None)
  Receive Date: 20221109
  Receipt Date: 20221109
  Transmission Date: 20230112
  Serious: Yes (Hospitalization)
  Sender: FDA-Public Use
  Company Number: None

PATIENT
  Age: 24 Year
  Sex: Male
  Weight: 80.3 kg

DRUGS (8)
  1. CYCLOPHOSPHAMIDE [Suspect]
     Active Substance: CYCLOPHOSPHAMIDE
     Dates: end: 20220912
  2. CYTARABINE [Suspect]
     Active Substance: CYTARABINE
     Dates: end: 20220921
  3. DEXAMETHASONE [Suspect]
     Active Substance: DEXAMETHASONE
     Dates: end: 20220904
  4. DOXORUBICIN HYDROCHLORIDE [Suspect]
     Active Substance: DOXORUBICIN HYDROCHLORIDE
     Dates: end: 20220829
  5. METHOTREXATE [Suspect]
     Active Substance: METHOTREXATE
     Dates: end: 20220919
  6. ONCASPAR [Suspect]
     Active Substance: PEGASPARGASE
     Dates: end: 20220818
  7. THIOGUANINE ANHYDROUS [Suspect]
     Active Substance: THIOGUANINE ANHYDROUS
     Dates: end: 20220920
  8. VINCRISTINE SULFATE [Suspect]
     Active Substance: VINCRISTINE SULFATE
     Dates: end: 20220829

REACTIONS (6)
  - Haemoglobin decreased [None]
  - Red blood cell transfusion [None]
  - Febrile neutropenia [None]
  - Blood culture positive [None]
  - Staphylococcal infection [None]
  - COVID-19 [None]

NARRATIVE: CASE EVENT DATE: 20220921
